FAERS Safety Report 5618406-1 (Version None)
Quarter: 2008Q1

REPORT INFORMATION
  Report Type: 
  Country: None (occurrence: None)
  Receive Date: 20080204
  Receipt Date: 20080123
  Transmission Date: 20080703
  Serious: Yes (Hospitalization)
  Sender: FDA-Public Use
  Company Number: TPA2007A02139

PATIENT
  Age: 67 Year
  Sex: Male

DRUGS (6)
  1. ROZEREM [Suspect]
     Indication: INSOMNIA
     Dosage: 8 MG, QHS, PER ORAL
     Route: 048
     Dates: start: 20070919, end: 20071001
  2. ADALAT [Suspect]
  3. PROTONIX [Concomitant]
  4. PLAVIX [Concomitant]
  5. LIPITOR [Concomitant]
  6. XANAX [Concomitant]

REACTIONS (2)
  - DERMATITIS ALLERGIC [None]
  - PYREXIA [None]
